FAERS Safety Report 20020178 (Version 2)
Quarter: 2021Q4

REPORT INFORMATION
  Report Type: Spontaneous
  Country: SE (occurrence: SE)
  Receive Date: 20211101
  Receipt Date: 20211122
  Transmission Date: 20220303
  Serious: Yes (Other)
  Sender: FDA-Public Use
  Company Number: SE-TOLMAR, INC.-21SE031164

PATIENT
  Age: 37 Year
  Sex: Female

DRUGS (6)
  1. ELIGARD [Suspect]
     Active Substance: LEUPROLIDE ACETATE
     Indication: In vitro fertilisation
     Dosage: UNK
  2. ELIGARD [Suspect]
     Active Substance: LEUPROLIDE ACETATE
     Dosage: UNK
  3. ALFENTANIL [Concomitant]
     Active Substance: ALFENTANIL
     Indication: Sedation
  4. ARTICAINE [Concomitant]
     Active Substance: ARTICAINE
     Indication: Anaesthesia
     Dosage: UNK
  5. FOLLITROPIN ALFA [Concomitant]
     Active Substance: FOLLITROPIN ALFA
     Indication: Ovarian hyperstimulation syndrome
  6. PROGESTERONE [Concomitant]
     Active Substance: PROGESTERONE
     Indication: Prophylaxis of abortion
     Route: 067

REACTIONS (2)
  - Abortion spontaneous [Unknown]
  - Off label use [Unknown]
